FAERS Safety Report 21707272 (Version 1)
Quarter: 2022Q4

REPORT INFORMATION
  Report Type: Report from Study
  Country: IN (occurrence: US)
  Receive Date: 20221209
  Receipt Date: 20221209
  Transmission Date: 20230112
  Serious: Yes (Death, Other)
  Sender: FDA-Public Use
  Company Number: IN-JNJFOC-20221215424

PATIENT

DRUGS (5)
  1. SIRTURO [Suspect]
     Active Substance: BEDAQUILINE FUMARATE
     Indication: Tuberculosis
     Route: 048
  2. DELAMANID [Suspect]
     Active Substance: DELAMANID
     Indication: Tuberculosis
     Route: 065
  3. CLOFAZIMINE [Suspect]
     Active Substance: CLOFAZIMINE
     Indication: Tuberculosis
     Route: 065
  4. MOXIFLOXACIN [Suspect]
     Active Substance: MOXIFLOXACIN
     Indication: Tuberculosis
     Route: 065
  5. LEVOFLOXACIN [Suspect]
     Active Substance: LEVOFLOXACIN
     Indication: Tuberculosis
     Route: 065

REACTIONS (23)
  - Death [Fatal]
  - Electrocardiogram QT prolonged [Unknown]
  - Neuropathy peripheral [Unknown]
  - Hepatitis [Unknown]
  - Nephropathy toxic [Unknown]
  - Deafness [Unknown]
  - Hypothyroidism [Unknown]
  - Suicidal ideation [Unknown]
  - Vertigo [Unknown]
  - Gastritis [Unknown]
  - Vomiting [Unknown]
  - Arthralgia [Unknown]
  - Asthenia [Unknown]
  - Psychotic disorder [Unknown]
  - Rash [Unknown]
  - Skin hyperpigmentation [Unknown]
  - Electrolyte imbalance [Unknown]
  - Headache [Unknown]
  - Dysgeusia [Unknown]
  - Dizziness [Unknown]
  - Depression [Unknown]
  - Pruritus [Unknown]
  - Vision blurred [Unknown]
